FAERS Safety Report 22178570 (Version 1)
Quarter: 2023Q2

REPORT INFORMATION
  Report Type: Spontaneous
  Country: TW (occurrence: TW)
  Receive Date: 20230405
  Receipt Date: 20230405
  Transmission Date: 20230721
  Serious: Yes (Other)
  Sender: FDA-Public Use
  Company Number: TW-ELI_LILLY_AND_COMPANY-TW202303013791

PATIENT
  Age: 65 Year
  Sex: Male
  Weight: 86.8 kg

DRUGS (1)
  1. CYRAMZA [Suspect]
     Active Substance: RAMUCIRUMAB
     Indication: Lung neoplasm malignant
     Dosage: UNK UNK, UNKNOWN
     Route: 042

REACTIONS (2)
  - Hydrocephalus [Unknown]
  - Malignant neoplasm progression [Unknown]
